FAERS Safety Report 6993637-7 (Version None)
Quarter: 2010Q3

REPORT INFORMATION
  Report Type: 
  Country: None (occurrence: None)
  Receive Date: 20100917
  Receipt Date: 20070504
  Transmission Date: 20110219
  Serious: Yes (Other)
  Sender: FDA-Public Use
  Company Number: US-ASTRAZENECA-2006UW11245

PATIENT
  Sex: Male

DRUGS (17)
  1. SEROQUEL [Suspect]
     Indication: DEPRESSION
     Dosage: 25MG TO 300MG
     Route: 048
     Dates: start: 19990101
  2. SEROQUEL [Suspect]
     Indication: SLEEP DISORDER
     Dosage: 25MG TO 300MG
     Route: 048
     Dates: start: 19990101
  3. SEROQUEL [Suspect]
     Route: 048
     Dates: start: 19990301, end: 20061201
  4. SEROQUEL [Suspect]
     Route: 048
     Dates: start: 19990301, end: 20061201
  5. RISPERDAL [Concomitant]
     Indication: PSYCHOTIC DISORDER
     Route: 048
     Dates: start: 20001103
  6. ZYPREXA [Concomitant]
  7. PROZAC [Concomitant]
     Indication: ANXIETY
     Route: 048
     Dates: start: 19990101
  8. TYLENOL [Concomitant]
     Indication: ARTHRALGIA
     Route: 048
     Dates: start: 20000101
  9. ATENOLOL [Concomitant]
     Indication: MITRAL VALVE PROLAPSE
     Route: 048
     Dates: start: 20000101
  10. ATENOLOL [Concomitant]
     Indication: CARDIAC DISORDER
     Route: 048
     Dates: start: 20000101
  11. NITROSTAT [Concomitant]
     Indication: CHEST PAIN
     Route: 048
     Dates: start: 20000101
  12. ASPIRIN [Concomitant]
     Indication: ANTICOAGULANT THERAPY
     Route: 048
     Dates: start: 19990101
  13. WELLBUTRIN SR [Concomitant]
     Route: 048
     Dates: start: 20020513
  14. PAXIL [Concomitant]
     Indication: MAJOR DEPRESSION
     Route: 048
     Dates: start: 19990101
  15. LANOXIN [Concomitant]
     Indication: MITRAL VALVE PROLAPSE
     Route: 048
     Dates: start: 19990101
  16. LANOXIN [Concomitant]
     Indication: CARDIAC DISORDER
     Route: 048
     Dates: start: 19990101
  17. MIDRIN [Concomitant]
     Indication: HEADACHE
     Route: 048
     Dates: start: 19990101

REACTIONS (2)
  - DIABETES MELLITUS [None]
  - PANCREATITIS [None]
